FAERS Safety Report 8187527-4 (Version None)
Quarter: 2012Q1

REPORT INFORMATION
  Report Type: 
  Country: None (occurrence: None)
  Receive Date: 20120306
  Receipt Date: 20120229
  Transmission Date: 20120608
  Serious: Yes (Death, Hospitalization, Other)
  Sender: FDA-Public Use
  Company Number: DE-ELI_LILLY_AND_COMPANY-10-11-00142

PATIENT
  Sex: Male
  Weight: 64.1 kg

DRUGS (10)
  1. FOLSAN [Concomitant]
     Indication: PRODUCT USED FOR UNKNOWN INDICATION
     Dates: start: 20100520
  2. NEXIUM [Concomitant]
     Indication: PROPHYLAXIS
     Dates: start: 20100421
  3. PEMETREXED [Suspect]
     Indication: NON-SMALL CELL LUNG CANCER
     Dosage: 900 MG, UNK
     Route: 042
     Dates: start: 20100521
  4. AMPICILLIN AND SULBACTAM [Concomitant]
     Indication: RESPIRATORY TRACT INFECTION
     Dates: start: 20100510, end: 20100515
  5. CISPLATIN [Suspect]
     Indication: NON-SMALL CELL LUNG CANCER
     Dosage: 130 MG, UNK
     Route: 042
     Dates: start: 20100521
  6. VOLTAREN                                /SCH/ [Concomitant]
     Indication: PAIN
  7. ACC                                /00082801/ [Concomitant]
     Indication: COUGH
  8. NECITUMUMAB (11F8) (LY3012211) [Suspect]
     Indication: NON-SMALL CELL LUNG CANCER
     Dosage: 800 MG, UNK
     Route: 042
     Dates: start: 20100520
  9. PREDNISONE TAB [Concomitant]
     Indication: PROPHYLAXIS
     Dates: start: 20100424
  10. CYANOCOBALAMIN [Concomitant]
     Indication: PRODUCT USED FOR UNKNOWN INDICATION
     Dates: start: 20100414, end: 20100514

REACTIONS (6)
  - INTESTINAL GANGRENE [None]
  - INTRA-ABDOMINAL HAEMORRHAGE [None]
  - SPLENIC INFARCTION [None]
  - INTESTINAL INFARCTION [None]
  - CHOLECYSTITIS INFECTIVE [None]
  - SEPSIS [None]
